FAERS Safety Report 10182636 (Version 1)
Quarter: 2014Q2

REPORT INFORMATION
  Report Type: Spontaneous
  Country: GB (occurrence: None)
  Receive Date: 20140516
  Receipt Date: 20140516
  Transmission Date: 20141212
  Serious: Yes (Hospitalization)
  Sender: FDA-Public Use
  Company Number: ABR_01645_2014

PATIENT
  Sex: 0

DRUGS (2)
  1. ERYTHROMYCIN (ERYTHROMYCIN) [Suspect]
     Indication: PRODUCT USED FOR UNKNOWN INDICATION
     Dosage: DF
  2. ERYTHROMYCIN LACTOBIONATE [Suspect]
     Indication: PNEUMONIA
     Dosage: DF
     Route: 042
     Dates: start: 1991

REACTIONS (12)
  - Pain in extremity [None]
  - Peripheral swelling [None]
  - Nightmare [None]
  - Drug administration error [None]
  - Incorrect drug administration rate [None]
  - Vein disorder [None]
  - Vomiting projectile [None]
  - Dehydration [None]
  - Muscle spasms [None]
  - Hypertension [None]
  - Heart rate irregular [None]
  - Injection site pain [None]
